FAERS Safety Report 6796321-8 (Version None)
Quarter: 2010Q2

REPORT INFORMATION
  Report Type: 
  Country: None (occurrence: None)
  Receive Date: 20100625
  Receipt Date: 20100617
  Transmission Date: 20101027
  Serious: Yes (Hospitalization)
  Sender: FDA-Public Use
  Company Number: US-AMGEN-US371190

PATIENT
  Age: 55 Year
  Sex: Male
  Weight: 90.3 kg

DRUGS (18)
  1. PROCRIT [Suspect]
     Indication: ANAEMIA
     Route: 058
     Dates: start: 20090605, end: 20090925
  2. UNSPECIFIED ANTI-INFECTIVE AGENT [Suspect]
     Route: 048
     Dates: start: 20081211, end: 20090928
  3. PEGINTERFERON ALFA-2A [Suspect]
     Route: 058
     Dates: start: 20081113, end: 20090925
  4. RIBAVIRIN [Suspect]
     Route: 048
     Dates: start: 20081113, end: 20090928
  5. NEULASTA [Suspect]
     Indication: DRUG USE FOR UNKNOWN INDICATION
     Dates: start: 20090731
  6. ARANESP [Suspect]
     Indication: ANAEMIA
     Dates: start: 20090731
  7. COMPAZINE [Concomitant]
     Dates: start: 20090721, end: 20090723
  8. ZOFRAN [Concomitant]
     Dates: start: 20090731
  9. AMBIEN [Concomitant]
     Dates: start: 20080930, end: 20091215
  10. LANTUS [Concomitant]
     Dates: start: 20070901
  11. NOVOLOG [Concomitant]
     Dates: start: 20070901
  12. DIOVAN [Concomitant]
     Dates: start: 20040101
  13. NORVASC [Concomitant]
     Dates: start: 20040101
  14. FLONASE [Concomitant]
     Dates: start: 19980101
  15. ALLEGRA [Concomitant]
     Dates: start: 19980101
  16. TUMS [Concomitant]
     Dates: start: 19980101
  17. EXCEDRIN (MIGRAINE) [Concomitant]
     Dates: start: 19900101
  18. NORCO [Concomitant]
     Dates: start: 20090617

REACTIONS (11)
  - ANAEMIA [None]
  - CHEST DISCOMFORT [None]
  - DEHYDRATION [None]
  - DRUG ADMINISTRATION ERROR [None]
  - FATIGUE [None]
  - LOSS OF CONSCIOUSNESS [None]
  - NEUTROPENIA [None]
  - PLATELET COUNT DECREASED [None]
  - SYNCOPE [None]
  - TREATMENT NONCOMPLIANCE [None]
  - WHITE BLOOD CELL COUNT DECREASED [None]
